FAERS Safety Report 10538610 (Version 17)
Quarter: 2017Q2

REPORT INFORMATION
  Report Type: Spontaneous
  Country: CA (occurrence: CA)
  Receive Date: 20141023
  Receipt Date: 20170619
  Transmission Date: 20170829
  Serious: Yes (Hospitalization, Other)
  Sender: FDA-Public Use
  Company Number: CA-GSKJP-KK201316802GSK1550188SC003

PATIENT
  Age: 52 Year
  Sex: Female
  Weight: 100 kg

DRUGS (11)
  1. BENLYSTA [Suspect]
     Active Substance: BELIMUMAB
     Indication: SYSTEMIC LUPUS ERYTHEMATOSUS
     Dosage: 0, 2, 4 WKS Q 4 WKS
     Route: 042
     Dates: start: 20130328
  2. BENLYSTA [Suspect]
     Active Substance: BELIMUMAB
     Dosage: 1000 MG, UNK
  3. BENLYSTA [Suspect]
     Active Substance: BELIMUMAB
     Dosage: 1000 MG, UNK
  4. BENLYSTA [Suspect]
     Active Substance: BELIMUMAB
     Dosage: 1000 MG, UNK
  5. LYRICA [Concomitant]
     Active Substance: PREGABALIN
     Indication: PRODUCT USED FOR UNKNOWN INDICATION
     Dosage: UNK
  6. BENLYSTA [Suspect]
     Active Substance: BELIMUMAB
     Dosage: 1000 MG, UNK
  7. PREDNISONE. [Concomitant]
     Active Substance: PREDNISONE
     Indication: SYSTEMIC LUPUS ERYTHEMATOSUS
     Dosage: 10 MG, U
     Route: 048
  8. AREDIA [Concomitant]
     Active Substance: PAMIDRONATE DISODIUM
     Indication: SYSTEMIC LUPUS ERYTHEMATOSUS
     Dosage: UNK
  9. BENLYSTA [Suspect]
     Active Substance: BELIMUMAB
     Dosage: UNK
     Dates: start: 20130328
  10. IMURAN [Concomitant]
     Active Substance: AZATHIOPRINE
     Indication: SYSTEMIC LUPUS ERYTHEMATOSUS
     Dosage: UNK
  11. PLAQUENIL [Concomitant]
     Active Substance: HYDROXYCHLOROQUINE SULFATE
     Indication: SYSTEMIC LUPUS ERYTHEMATOSUS
     Dosage: UNK

REACTIONS (34)
  - Somnolence [Unknown]
  - Pleural effusion [Unknown]
  - Feeling abnormal [Not Recovered/Not Resolved]
  - Liver function test abnormal [Unknown]
  - Neuritis [Unknown]
  - Ill-defined disorder [Unknown]
  - Hypersomnia [Unknown]
  - Pain in extremity [Not Recovered/Not Resolved]
  - Malaise [Unknown]
  - Fall [Unknown]
  - Device failure [Recovered/Resolved]
  - Arthritis bacterial [Unknown]
  - Depressed mood [Unknown]
  - Peripheral swelling [Unknown]
  - Injury [Unknown]
  - Wound [Not Recovered/Not Resolved]
  - DNA antibody positive [Unknown]
  - Headache [Recovered/Resolved]
  - Transfusion [Unknown]
  - Back pain [Unknown]
  - Anaemia [Recovered/Resolved]
  - Drug dose omission [Unknown]
  - Psychiatric symptom [Unknown]
  - Adverse event [Unknown]
  - Fatigue [Unknown]
  - Walking aid user [Not Recovered/Not Resolved]
  - Abdominal hernia [Unknown]
  - Pain [Not Recovered/Not Resolved]
  - Monoplegia [Unknown]
  - Spinal fracture [Not Recovered/Not Resolved]
  - Device breakage [Unknown]
  - Wound infection [Not Recovered/Not Resolved]
  - Knee operation [Recovered/Resolved]
  - Bronchitis [Unknown]

NARRATIVE: CASE EVENT DATE: 20130328
